FAERS Safety Report 15792705 (Version 3)
Quarter: 2019Q2

REPORT INFORMATION
  Report Type: Spontaneous
  Country: US (occurrence: US)
  Receive Date: 20190107
  Receipt Date: 20190410
  Transmission Date: 20190711
  Serious: No
  Sender: FDA-Public Use
  Company Number: US-TEVA-2018-US-991844

PATIENT
  Sex: Female

DRUGS (1)
  1. BUPROPION HYDROCHLORIDE EXTENDED RELEASE TABLETS ACTAVIS [Suspect]
     Active Substance: BUPROPION HYDROCHLORIDE
     Indication: MAJOR DEPRESSION
     Route: 065
     Dates: start: 1998

REACTIONS (4)
  - Memory impairment [Unknown]
  - Product substitution issue [Unknown]
  - Disturbance in attention [Unknown]
  - Product dispensing error [Unknown]
